FAERS Safety Report 9311272 (Version 3)
Quarter: 2013Q4

REPORT INFORMATION
  Report Type: Spontaneous
  Country: US (occurrence: US)
  Receive Date: 20130528
  Receipt Date: 20131001
  Transmission Date: 20140711
  Serious: Yes (Other)
  Sender: FDA-Public Use
  Company Number: US-PFIZER INC-2013159491

PATIENT
  Age: 55 Year
  Sex: Male

DRUGS (15)
  1. DILANTIN KAPSEAL [Suspect]
     Indication: CONVULSION
     Dosage: 300 MG, 2X/DAY
     Route: 048
     Dates: start: 19770323
  2. DILANTIN KAPSEAL [Suspect]
     Dosage: 100 MG, 3X/DAY
     Route: 048
     Dates: start: 19800312
  3. DILANTIN KAPSEAL [Suspect]
     Dosage: 200 MG, 1X/DAY
     Route: 048
     Dates: start: 19811123
  4. DILANTIN KAPSEAL [Suspect]
     Dosage: 100 MG, 2X/DAY
     Route: 048
     Dates: start: 20080307
  5. DILANTIN KAPSEAL [Suspect]
     Dosage: 400 MG, 1X/DAY (IN THE EVENING)
     Route: 048
     Dates: start: 20080328
  6. DILANTIN KAPSEAL [Suspect]
     Dosage: 300 MG, 1X/DAY (IN THE EVENING)
     Route: 048
     Dates: start: 20080519
  7. DILANTIN KAPSEAL [Suspect]
     Dosage: 300 MG, 1X/DAY (AT BED TIME)
     Route: 048
     Dates: start: 20090603
  8. DILANTIN KAPSEAL [Suspect]
     Dosage: 200 MG, 1X/DAY
     Route: 048
     Dates: start: 20130204
  9. DILANTIN KAPSEAL [Suspect]
     Dosage: 100 MG, 1X/DAY
     Route: 048
     Dates: start: 201302
  10. DILANTIN KAPSEAL [Suspect]
     Dosage: 100 MG, ALTERNATE DAY
     Route: 048
     Dates: start: 2013
  11. DILANTIN [Suspect]
     Indication: CONVULSION
     Dosage: 100 MG, 2X/DAY
     Route: 048
     Dates: start: 20060404
  12. DILANTIN [Suspect]
     Indication: CONVULSION
     Dosage: 100 MG, 2X/DAY
     Route: 048
     Dates: start: 20020903
  13. DILANTIN [Suspect]
     Dosage: 300 MG, 1X/DAY (EVERY NIGHT)
     Route: 048
     Dates: start: 20110419
  14. DILANTIN [Suspect]
     Dosage: 100 MG, 1X/DAY
     Route: 048
     Dates: start: 20120131
  15. DILANTIN [Suspect]
     Dosage: UNK
     Route: 048
     Dates: start: 20130211

REACTIONS (2)
  - Cerebral atrophy [Unknown]
  - Stevens-Johnson syndrome [Unknown]
